FAERS Safety Report 18367303 (Version 1)
Quarter: 2020Q4

REPORT INFORMATION
  Report Type: Spontaneous
  Country: IT (occurrence: IT)
  Receive Date: 20201009
  Receipt Date: 20201009
  Transmission Date: 20210114
  Serious: Yes (Hospitalization)
  Sender: FDA-Public Use
  Company Number: IT-ALLERGAN-2038442US

PATIENT
  Sex: Female
  Weight: 56 kg

DRUGS (3)
  1. MESALAZINE UNK [Suspect]
     Active Substance: MESALAMINE
     Indication: INTESTINAL ULCER
     Dosage: 2400 MG, QD
     Route: 048
     Dates: start: 20200801, end: 20200928
  2. ESOMEPRAZOLE SODIUM. [Suspect]
     Active Substance: ESOMEPRAZOLE SODIUM
     Indication: GASTROINTESTINAL ULCER
     Dosage: 40 MG, QD
     Dates: start: 20200925, end: 20200928
  3. MACROGOL 4000 [Concomitant]
     Active Substance: POLYETHYLENE GLYCOL 4000
     Indication: CONSTIPATION
     Dosage: 1 DF, PRN
     Route: 048

REACTIONS (1)
  - Dermatitis exfoliative generalised [Recovering/Resolving]

NARRATIVE: CASE EVENT DATE: 20200925
